FAERS Safety Report 9109097 (Version 1)
Quarter: 2013Q1

REPORT INFORMATION
  Report Type: Spontaneous
  Country: US (occurrence: US)
  Receive Date: 20130222
  Receipt Date: 20130222
  Transmission Date: 20140127
  Serious: No
  Sender: FDA-Public Use
  Company Number: US-009507513-1302USA009408

PATIENT
  Age: 71 Year
  Sex: Female

DRUGS (2)
  1. JANUVIA [Suspect]
     Indication: DIABETES MELLITUS
     Dosage: 100MG/ONCE A DAY
     Route: 048
  2. JANUVIA [Suspect]
     Dosage: UNK
     Route: 048

REACTIONS (3)
  - Pain [Recovered/Resolved]
  - Neck pain [Recovered/Resolved]
  - Medication residue present [Unknown]
